FAERS Safety Report 10312177 (Version 1)
Quarter: 2014Q3

REPORT INFORMATION
  Report Type: Spontaneous
  Country: US (occurrence: US)
  Receive Date: 20140718
  Receipt Date: 20140718
  Transmission Date: 20150326
  Serious: Yes (Other)
  Sender: FDA-Public Use
  Company Number: PHHY2014US086586

PATIENT
  Sex: Male

DRUGS (10)
  1. METFORMIN [Suspect]
     Active Substance: METFORMIN HYDROCHLORIDE
     Route: 064
  2. AMLODIPINE [Suspect]
     Active Substance: AMLODIPINE BESYLATE
     Route: 064
  3. FOLIC ACID. [Suspect]
     Active Substance: FOLIC ACID
     Route: 064
  4. FUROSEMIDE. [Suspect]
     Active Substance: FUROSEMIDE
     Route: 064
  5. BETAMETHASONE [Suspect]
     Active Substance: BETAMETHASONE
     Route: 064
  6. PRENATAL VITAMINS [Suspect]
     Active Substance: VITAMINS
     Route: 064
  7. CALCIUM [Suspect]
     Active Substance: CALCIUM
     Route: 064
  8. HYDRALAZINE [Suspect]
     Active Substance: HYDRALAZINE HYDROCHLORIDE
     Route: 064
  9. METOPROLOL [Suspect]
     Active Substance: METOPROLOL
     Route: 064
  10. INSULIN [Suspect]
     Active Substance: INSULIN NOS
     Route: 064

REACTIONS (3)
  - Hypotension [Unknown]
  - Foetal exposure during pregnancy [Unknown]
  - Premature baby [Unknown]
